FAERS Safety Report 7591893-8 (Version None)
Quarter: 2011Q3

REPORT INFORMATION
  Report Type: 
  Country: None (occurrence: None)
  Receive Date: 20110701
  Receipt Date: 20110701
  Transmission Date: 20111222
  Serious: Yes (Life-Threatening, Other)
  Sender: FDA-Public Use
  Company Number: None

PATIENT

DRUGS (1)
  1. ZETIA [Suspect]
     Dosage: 10 MILLIGRAMS

REACTIONS (5)
  - ARTHRALGIA [None]
  - DIZZINESS [None]
  - PAIN IN EXTREMITY [None]
  - MUSCLE SPASMS [None]
  - ASTHENIA [None]
